FAERS Safety Report 23399321 (Version 1)
Quarter: 2024Q1

REPORT INFORMATION
  Report Type: Spontaneous
  Country: BE (occurrence: BE)
  Receive Date: 20240113
  Receipt Date: 20240113
  Transmission Date: 20240410
  Serious: Yes (Disabling)
  Sender: FDA-Public Use
  Company Number: BE-FAMHP-DHH-N2023-121417

PATIENT
  Sex: Male

DRUGS (2)
  1. SERTRALINE [Suspect]
     Active Substance: SERTRALINE HYDROCHLORIDE
     Indication: Obsessive-compulsive disorder
     Dosage: 100 MILLIGRAM, ONCE A DAY (2 KEER PER DAG)
     Route: 048
     Dates: start: 20231115
  2. RISPERDAL [Suspect]
     Active Substance: RISPERIDONE
     Indication: Restlessness
     Dosage: 1 MILLIGRAM, ONCE A DAY (1 KEER PER DAG)
     Route: 048
     Dates: start: 20231115, end: 20231215

REACTIONS (4)
  - Paraesthesia [Not Recovered/Not Resolved]
  - Limb discomfort [Not Recovered/Not Resolved]
  - Vasodilatation [Not Recovered/Not Resolved]
  - Headache [Recovered/Resolved]

NARRATIVE: CASE EVENT DATE: 20231118
